FAERS Safety Report 23703968 (Version 1)
Quarter: 2024Q2

REPORT INFORMATION
  Report Type: Report from Study
  Country: AR (occurrence: AR)
  Receive Date: 20240403
  Receipt Date: 20240403
  Transmission Date: 20240716
  Serious: Yes (Hospitalization)
  Sender: FDA-Public Use
  Company Number: AR-Merck Healthcare KGaA-2024016933

PATIENT
  Sex: Male

DRUGS (1)
  1. REBIF [Suspect]
     Active Substance: INTERFERON BETA-1A
     Indication: Product used for unknown indication
     Route: 058
     Dates: start: 20160715

REACTIONS (7)
  - Dyspnoea [Recovering/Resolving]
  - Oxygen saturation abnormal [Recovering/Resolving]
  - Secretion discharge [Recovering/Resolving]
  - Pneumonia [Recovering/Resolving]
  - Viral infection [Recovering/Resolving]
  - Asthenia [Recovering/Resolving]
  - Inappropriate schedule of product administration [Recovering/Resolving]
